FAERS Safety Report 9147084 (Version 4)
Quarter: 2015Q3

REPORT INFORMATION
  Report Type: Spontaneous
  Country: US (occurrence: US)
  Receive Date: 20130307
  Receipt Date: 20150701
  Transmission Date: 20151125
  Serious: Yes (Hospitalization)
  Sender: FDA-Public Use
  Company Number: US-BAYER-2013-025541

PATIENT
  Age: 26 Year
  Sex: Female

DRUGS (8)
  1. DOXYCYCLINE. [Concomitant]
     Active Substance: DOXYCYCLINE
  2. HYDROCODONE W/ACETAMINOPHEN [Concomitant]
     Active Substance: ACETAMINOPHEN\HYDROCODONE BITARTRATE
  3. WELLBUTRIN [Concomitant]
     Active Substance: BUPROPION HYDROCHLORIDE
  4. MIRENA [Suspect]
     Active Substance: LEVONORGESTREL
     Indication: CONTRACEPTION
     Dosage: 20 MCG/24HR, CONT
     Route: 015
     Dates: start: 20090126, end: 20110125
  5. IBUPROFEN. [Concomitant]
     Active Substance: IBUPROFEN
  6. ORTHO EVRA [Concomitant]
     Active Substance: ETHINYL ESTRADIOL\NORELGESTROMIN
  7. MACROBID [Concomitant]
     Active Substance: NITROFURANTOIN\NITROFURANTOIN MONOHYDRATE
  8. CITALOPRAM [Concomitant]
     Active Substance: CITALOPRAM HYDROBROMIDE

REACTIONS (14)
  - Sleep disorder [None]
  - Scar [None]
  - Psychological trauma [None]
  - Sexual dysfunction [None]
  - Abdominal pain lower [None]
  - Abdominal pain upper [None]
  - Injury [None]
  - Emotional distress [None]
  - Depression [None]
  - Device issue [None]
  - Uterine perforation [None]
  - Anxiety [None]
  - Device failure [None]
  - Dyspareunia [None]
